APPROVED DRUG PRODUCT: NEOSTIGMINE METHYLSULFATE
Active Ingredient: NEOSTIGMINE METHYLSULFATE
Strength: 5MG/10ML (0.5MG/ML)
Dosage Form/Route: SOLUTION;INTRAVENOUS
Application: N203629 | Product #001
Applicant: FRESENIUS KABI USA LLC
Approved: Jan 8, 2015 | RLD: Yes | RS: Yes | Type: RX